FAERS Safety Report 16321352 (Version 1)
Quarter: 2019Q2

REPORT INFORMATION
  Report Type: Spontaneous
  Country: US (occurrence: US)
  Receive Date: 20190516
  Receipt Date: 20190516
  Transmission Date: 20190711
  Serious: No
  Sender: FDA-Public Use
  Company Number: US-MIKART, INC.-2067090

PATIENT
  Sex: Male
  Weight: 72.73 kg

DRUGS (5)
  1. HYDROCODONE BITARTRATE AND ACETAMINOPHEN [Suspect]
     Active Substance: ACETAMINOPHEN\HYDROCODONE BITARTRATE
     Route: 048
  2. GABAPENTIN. [Concomitant]
     Active Substance: GABAPENTIN
  3. FENTANYL. [Concomitant]
     Active Substance: FENTANYL
  4. LYRICA [Concomitant]
     Active Substance: PREGABALIN
  5. BUPROPION. [Concomitant]
     Active Substance: BUPROPION
     Dates: start: 2017

REACTIONS (1)
  - Drug ineffective [Unknown]
